FAERS Safety Report 16498381 (Version 1)
Quarter: 2019Q2

REPORT INFORMATION
  Report Type: Spontaneous
  Country: CA (occurrence: CA)
  Receive Date: 20190629
  Receipt Date: 20190629
  Transmission Date: 20190711
  Serious: Yes (Hospitalization, Other)
  Sender: FDA-Public Use
  Company Number: CA-AUROBINDO-AUR-APL-2019-009956

PATIENT

DRUGS (27)
  1. OLANZAPINE. [Suspect]
     Active Substance: OLANZAPINE
     Indication: SCHIZOPHRENIA
     Dosage: UNK
     Route: 065
  2. LAMOTRIGINE TABLET [Suspect]
     Active Substance: LAMOTRIGINE
     Indication: SCHIZOPHRENIA
     Dosage: UNK
     Route: 065
  3. ARIPIPRAZOLE. [Suspect]
     Active Substance: ARIPIPRAZOLE
     Indication: SCHIZOPHRENIA
  4. LOXAPINE. [Suspect]
     Active Substance: LOXAPINE
     Indication: SCHIZOAFFECTIVE DISORDER
     Dosage: UNK
     Route: 065
  5. ABILIFY [Suspect]
     Active Substance: ARIPIPRAZOLE
     Indication: SCHIZOAFFECTIVE DISORDER
     Dosage: UNK
     Route: 065
  6. APO-OLANZAPINE [Suspect]
     Active Substance: OLANZAPINE
     Dosage: 10 MILLIGRAM
     Route: 065
  7. BENZATROPINE [Suspect]
     Active Substance: BENZTROPINE
     Indication: SCHIZOPHRENIA
     Dosage: UNK
     Route: 065
  8. VALPROIC ACID. [Suspect]
     Active Substance: VALPROIC ACID
     Indication: SCHIZOPHRENIA
  9. SODIUM VALPROATE [Suspect]
     Active Substance: VALPROATE SODIUM
     Indication: SCHIZOPHRENIA
  10. APO-OLANZAPINE [Suspect]
     Active Substance: OLANZAPINE
     Indication: PRODUCT USED FOR UNKNOWN INDICATION
     Dosage: 15 MILLIGRAM
     Route: 065
  11. LITHIUM. [Concomitant]
     Active Substance: LITHIUM
     Indication: AFFECTIVE DISORDER
     Dosage: UNK
     Route: 065
  12. QUETIAPINE FILM-COATED TABLET [Suspect]
     Active Substance: QUETIAPINE
     Indication: SCHIZOPHRENIA
     Dosage: 5 MILLIGRAM
     Route: 048
  13. QUETIAPINE FILM-COATED TABLET [Suspect]
     Active Substance: QUETIAPINE
     Indication: SCHIZOAFFECTIVE DISORDER
     Dosage: UNK
     Route: 048
  14. LAMOTRIGINE TABLET [Suspect]
     Active Substance: LAMOTRIGINE
     Indication: AFFECTIVE DISORDER
  15. RISPERIDONE. [Suspect]
     Active Substance: RISPERIDONE
     Indication: SCHIZOPHRENIA
     Dosage: 25 MILLIGRAM EVERY 2 WEEKS
     Route: 030
  16. ZELDOX [Suspect]
     Active Substance: ZIPRASIDONE
     Indication: PRODUCT USED FOR UNKNOWN INDICATION
     Dosage: UNK
     Route: 065
  17. RISPERDAL CONSTA [Suspect]
     Active Substance: RISPERIDONE
     Indication: SCHIZOAFFECTIVE DISORDER
     Dosage: 25 MILLIGRAM
     Route: 030
  18. VALPROIC ACID. [Suspect]
     Active Substance: VALPROIC ACID
     Indication: SCHIZOAFFECTIVE DISORDER
     Dosage: UNK
     Route: 065
  19. LITHIUM. [Concomitant]
     Active Substance: LITHIUM
     Indication: SCHIZOPHRENIA
  20. LOXAPINE. [Suspect]
     Active Substance: LOXAPINE
     Indication: SCHIZOPHRENIA
     Dosage: 50 MILLIGRAM, DAILY
     Route: 065
  21. RISPERIDONE. [Suspect]
     Active Substance: RISPERIDONE
     Indication: SCHIZOAFFECTIVE DISORDER
     Dosage: UNK
     Route: 030
  22. ARIPIPRAZOLE. [Suspect]
     Active Substance: ARIPIPRAZOLE
     Indication: SCHIZOPHRENIA
     Dosage: UNK
     Route: 065
  23. SODIUM VALPROATE [Suspect]
     Active Substance: VALPROATE SODIUM
     Indication: AFFECTIVE DISORDER
     Dosage: UNK
     Route: 065
  24. OLANZAPINE. [Suspect]
     Active Substance: OLANZAPINE
     Indication: SCHIZOAFFECTIVE DISORDER
     Dosage: 5 MILLIGRAM, DAILY
     Route: 065
  25. ARIPIPRAZOLE. [Suspect]
     Active Substance: ARIPIPRAZOLE
     Indication: SCHIZOAFFECTIVE DISORDER
     Dosage: UNK
     Route: 030
  26. ABILIFY [Suspect]
     Active Substance: ARIPIPRAZOLE
     Indication: SCHIZOPHRENIA
  27. BENZATROPINE [Suspect]
     Active Substance: BENZTROPINE
     Indication: SCHIZOAFFECTIVE DISORDER

REACTIONS (1)
  - Oculogyric crisis [Recovered/Resolved]
